FAERS Safety Report 17277518 (Version 4)
Quarter: 2020Q2

REPORT INFORMATION
  Report Type: Report from Study
  Country: AU (occurrence: AU)
  Receive Date: 20200116
  Receipt Date: 20200406
  Transmission Date: 20200713
  Serious: Yes (Hospitalization)
  Sender: FDA-Public Use
  Company Number: AU-IPSEN BIOPHARMACEUTICALS, INC.-2019-24153

PATIENT
  Age: 58 Year
  Sex: Female

DRUGS (14)
  1. MOVICOL [Concomitant]
     Active Substance: POLYETHYLENE GLYCOL 3350\POTASSIUM CHLORIDE\SODIUM BICARBONATE\SODIUM CHLORIDE
     Dosage: 1 SACHET, EACH SACHET DISSOLVED IN AT LEAST 125ML OF WATER
  2. AROPAX [Concomitant]
     Active Substance: PAROXETINE HYDROCHLORIDE
     Indication: EUPHORIC MOOD
     Dosage: 1 TABLET IN THE MORNING
  3. ALDACTONE [Concomitant]
     Active Substance: SPIRONOLACTONE
     Indication: FLUID RETENTION
     Dosage: 1 TABLET IN THE MORNING
  4. SOMATULINE AUTOGEL [Suspect]
     Active Substance: LANREOTIDE ACETATE
     Indication: CARCINOID TUMOUR
     Route: 058
     Dates: start: 2012, end: 20200402
  5. ONDANSETRON [Suspect]
     Active Substance: ONDANSETRON
     Indication: PRODUCT USED FOR UNKNOWN INDICATION
  6. XIFAXAN [Concomitant]
     Active Substance: RIFAXIMIN
     Indication: ENCEPHALOPATHY
  7. PANADOL [Concomitant]
     Active Substance: ACETAMINOPHEN
     Indication: PAIN
     Dosage: MAXIMUM 4 TABLETS IN 24 HOURS
  8. PANTOPRAZOLE [Concomitant]
     Active Substance: PANTOPRAZOLE
     Dosage: 1 TABLET IN THE MORNING
  9. ESTRIOL [Concomitant]
     Active Substance: ESTRIOL
     Dosage: 1MG/G
  10. SEVREDOL [Concomitant]
     Active Substance: MORPHINE
  11. SEVREDOL [Concomitant]
     Active Substance: MORPHINE
     Indication: PAIN
  12. HYDROMORPHONE [Concomitant]
     Active Substance: HYDROMORPHONE
     Indication: PAIN
  13. FENTANYL. [Suspect]
     Active Substance: FENTANYL
     Indication: PRODUCT USED FOR UNKNOWN INDICATION
  14. ACTILAX [Concomitant]
     Active Substance: LACTULOSE
     Indication: CONSTIPATION
     Dosage: 3.34G/5ML, 500ML SYRUP

REACTIONS (13)
  - Feeling abnormal [Unknown]
  - Pain [Not Recovered/Not Resolved]
  - Nausea [Recovered/Resolved]
  - Dizziness [Unknown]
  - Vomiting [Not Recovered/Not Resolved]
  - Constipation [Unknown]
  - Fractured sacrum [Recovered/Resolved]
  - Fall [Not Recovered/Not Resolved]
  - Nausea [Unknown]
  - Urinary tract infection [Unknown]
  - Product dose omission [Unknown]
  - Fear of injection [Unknown]
  - Diarrhoea [Not Recovered/Not Resolved]

NARRATIVE: CASE EVENT DATE: 20180705
